FAERS Safety Report 4509331-8 (Version None)
Quarter: 2004Q4

REPORT INFORMATION
  Report Type: 
  Country: None (occurrence: None)
  Receive Date: 20041123
  Receipt Date: 20041118
  Transmission Date: 20050328
  Serious: Yes (Other)
  Sender: FDA-Public Use
  Company Number: US-MERCK-0411USA03240

PATIENT
  Age: 68 Year
  Sex: Female

DRUGS (8)
  1. VIOXX [Suspect]
     Indication: ARTHRITIS
     Route: 048
     Dates: end: 20041001
  2. VIOXX [Suspect]
     Indication: BACK PAIN
     Route: 048
     Dates: end: 20041001
  3. HYDROCODONE BITARTRATE [Concomitant]
     Route: 065
  4. NEXIUM [Concomitant]
     Route: 065
  5. PROZAC [Concomitant]
     Route: 065
  6. ALLEGRA [Concomitant]
     Route: 065
  7. TRIAMTERENE [Concomitant]
     Route: 065
  8. HUMULIN 70/30 [Concomitant]
     Route: 065

REACTIONS (4)
  - CATARACT [None]
  - EYE HAEMORRHAGE [None]
  - EYE SWELLING [None]
  - OCULAR VASCULAR DISORDER [None]
